FAERS Safety Report 5816721-X (Version None)
Quarter: 2008Q3

REPORT INFORMATION
  Report Type: 
  Country: None (occurrence: None)
  Receive Date: 20080721
  Receipt Date: 20080624
  Transmission Date: 20090109
  Serious: Yes (Death, Life-Threatening, Hospitalization)
  Sender: FDA-Public Use
  Company Number: FR-PFIZER INC-2008059015

PATIENT
  Sex: Male

DRUGS (13)
  1. SOLU-MEDROL [Suspect]
     Route: 042
     Dates: start: 20060926, end: 20060928
  2. PRAZEPAM [Suspect]
     Indication: ANXIETY
     Route: 048
  3. CISPLATIN [Suspect]
     Route: 042
     Dates: start: 20060926, end: 20060928
  4. PREVISCAN [Suspect]
     Route: 048
  5. TAXOTERE [Suspect]
     Route: 042
     Dates: start: 20060926, end: 20060926
  6. ZOPHREN [Suspect]
     Route: 042
  7. DOMPERIDONE [Suspect]
     Route: 048
  8. GAVISCON [Suspect]
     Route: 048
  9. LOPERAMIDE HCL [Suspect]
     Route: 048
  10. NEXIUM [Suspect]
     Route: 048
  11. AMITRIPTYLINE HYDROCHLORIDE [Suspect]
     Route: 048
  12. OXYCONTIN [Suspect]
     Route: 048
  13. PROFENID [Suspect]

REACTIONS (3)
  - ANAEMIA [None]
  - CONDITION AGGRAVATED [None]
  - HAEMORRHAGE [None]
